FAERS Safety Report 10257201 (Version 1)
Quarter: 2014Q2

REPORT INFORMATION
  Report Type: Spontaneous
  Country: US (occurrence: None)
  Receive Date: 20140620
  Receipt Date: 20140620
  Transmission Date: 20141212
  Serious: Yes (Other)
  Sender: FDA-Public Use
  Company Number: PRED20140035

PATIENT
  Age: 71 Year
  Sex: Male

DRUGS (12)
  1. PREDNISONE [Suspect]
     Indication: FOLLICLE CENTRE LYMPHOMA DIFFUSE SMALL CELL LYMPHOMA STAGE IV
     Route: 048
     Dates: start: 1996, end: 1997
  2. PREDNISONE [Suspect]
     Indication: CHEMOTHERAPY
     Route: 048
     Dates: start: 1996, end: 1997
  3. CYCLOPHOSPHAMIDE (CYCLOPHOSPHAMIDE) [Suspect]
     Indication: FOLLICLE CENTRE LYMPHOMA DIFFUSE SMALL CELL LYMPHOMA STAGE IV
     Dates: start: 1996, end: 1997
  4. CYCLOPHOSPHAMIDE (CYCLOPHOSPHAMIDE) [Suspect]
     Indication: CHEMOTHERAPY
     Dates: start: 1996, end: 1997
  5. HYDROXYDAUNORUBICIN [Suspect]
     Indication: FOLLICLE CENTRE LYMPHOMA DIFFUSE SMALL CELL LYMPHOMA STAGE IV
     Dates: start: 1996, end: 1997
  6. HYDROXYDAUNORUBICIN [Suspect]
     Indication: CHEMOTHERAPY
     Dates: start: 1996, end: 1997
  7. VINCRISTINE (VINCRISTINE) [Suspect]
     Indication: FOLLICLE CENTRE LYMPHOMA DIFFUSE SMALL CELL LYMPHOMA STAGE IV
     Dates: start: 1996, end: 1997
  8. VINCRISTINE (VINCRISTINE) [Suspect]
     Indication: CHEMOTHERAPY
     Dates: start: 1996, end: 1997
  9. ROSUVASTATIN (ROSUVASTATIN) [Concomitant]
  10. ASPIRIN (ACETYLSALICYLIC ACID) [Concomitant]
  11. FISH OIL (FISH OIL) [Concomitant]
  12. MULTIVITAMINS (ERGOCALCIFEROL, ASCORBIC ACID, FOLIC ACID, THIAMINE HYDROCHLORIDE, RETINOIL, RIBOFLAVIN, NICOTINAMIDE, PANTHENOL) [Concomitant]

REACTIONS (4)
  - Panniculitis [None]
  - Inflammation [None]
  - Skin mass [None]
  - Non-Hodgkin^s lymphoma [None]
